FAERS Safety Report 7352452-5 (Version None)
Quarter: 2011Q1

REPORT INFORMATION
  Report Type: 
  Country: None (occurrence: None)
  Receive Date: 20110315
  Receipt Date: 20110307
  Transmission Date: 20110831
  Serious: Yes (Other)
  Sender: FDA-Public Use
  Company Number: US-ASTRAZENECA-2011SE12374

PATIENT
  Age: 50 Year
  Sex: Male

DRUGS (2)
  1. VIMOVO [Suspect]
     Dosage: 500/20 MG
     Route: 048
  2. CLARITAN 1 [Concomitant]

REACTIONS (1)
  - ATRIAL FIBRILLATION [None]
